FAERS Safety Report 5323650-7 (Version None)
Quarter: 2007Q2

REPORT INFORMATION
  Report Type: 
  Country: None (occurrence: None)
  Receive Date: 20070507
  Receipt Date: 20070427
  Transmission Date: 20071010
  Serious: Yes (Hospitalization)
  Sender: FDA-Public Use
  Company Number: 230015K07FRA

PATIENT
  Age: 53 Year
  Sex: Male

DRUGS (1)
  1. REBIF [Suspect]
     Indication: MULTIPLE SCLEROSIS
     Dosage: 44 MCG
     Dates: start: 20000101

REACTIONS (3)
  - IMPAIRED HEALING [None]
  - INJECTION SITE ABSCESS STERILE [None]
  - WHITE BLOOD CELL COUNT INCREASED [None]
